FAERS Safety Report 8565180-5 (Version None)
Quarter: 2012Q3

REPORT INFORMATION
  Report Type: 
  Country: None (occurrence: None)
  Receive Date: 20120803
  Receipt Date: 20120723
  Transmission Date: 20120928
  Serious: Yes (Hospitalization, Other)
  Sender: FDA-Public Use
  Company Number: US-009507513-1203USA01854

PATIENT

DRUGS (3)
  1. FOSAMAX [Suspect]
     Indication: OSTEOPOROSIS
     Dosage: 10 MG, QD
     Route: 048
     Dates: start: 19990401, end: 20100401
  2. FOSAMAX [Suspect]
     Dosage: 70 MG, QW
     Route: 048
     Dates: start: 19990401, end: 20100401
  3. FOSAMAX PLUS D [Suspect]

REACTIONS (14)
  - FEMUR FRACTURE [None]
  - KNEE ARTHROPLASTY [None]
  - ASTHMA [None]
  - FALL [None]
  - ARTHRALGIA [None]
  - JOINT DISLOCATION [None]
  - HYPERTENSION [None]
  - ANAEMIA POSTOPERATIVE [None]
  - BLOOD CHOLESTEROL INCREASED [None]
  - PAIN IN EXTREMITY [None]
  - BACK PAIN [None]
  - ADVERSE EVENT [None]
  - URINARY TRACT INFECTION [None]
  - RIB FRACTURE [None]
